FAERS Safety Report 11888666 (Version 2)
Quarter: 2016Q1

REPORT INFORMATION
  Report Type: Spontaneous
  Country: US (occurrence: US)
  Receive Date: 20160105
  Receipt Date: 20160321
  Transmission Date: 20160526
  Serious: No
  Sender: FDA-Public Use
  Company Number: US-JNJFOC-20151224370

PATIENT
  Sex: Female
  Weight: 68.04 kg

DRUGS (5)
  1. DURAGESIC [Suspect]
     Active Substance: FENTANYL
     Indication: ARTHRITIS
     Route: 062
     Dates: start: 2008
  2. OXYCODONE [Concomitant]
     Active Substance: OXYCODONE
     Indication: ARTHRITIS
     Route: 065
  3. MORPHINE [Suspect]
     Active Substance: MORPHINE
     Indication: ARTHRITIS
     Route: 065
  4. DURAGESIC [Suspect]
     Active Substance: FENTANYL
     Indication: ARTHRITIS
     Route: 062
     Dates: start: 2000
  5. PERCOCET [Concomitant]
     Active Substance: ACETAMINOPHEN\OXYCODONE HYDROCHLORIDE
     Indication: ARTHRITIS
     Route: 065

REACTIONS (5)
  - Drug ineffective [Unknown]
  - Inappropriate schedule of drug administration [Unknown]
  - Pain [Recovering/Resolving]
  - Insomnia [Recovering/Resolving]
  - Arthritis [Recovering/Resolving]

NARRATIVE: CASE EVENT DATE: 2000
